FAERS Safety Report 4519677-5 (Version None)
Quarter: 2004Q4

REPORT INFORMATION
  Report Type: 
  Country: None (occurrence: None)
  Receive Date: 20041206
  Receipt Date: 20040929
  Transmission Date: 20050328
  Serious: Yes (Hospitalization, Other)
  Sender: FDA-Public Use
  Company Number: PHBS2004JP12940

PATIENT
  Age: 32 Year
  Sex: Female
  Weight: 30 kg

DRUGS (9)
  1. VOLTAREN [Suspect]
     Dosage: 25 MG/DAY
     Route: 054
     Dates: start: 20020714, end: 20020810
  2. LASIX [Suspect]
     Indication: OEDEMA
     Dosage: 40 MG/DAY
     Route: 048
     Dates: start: 19951220, end: 20030227
  3. LASIX [Suspect]
     Dosage: 40 MG/DAY
     Route: 048
     Dates: start: 19970601
  4. LAXATIVES [Suspect]
     Dates: start: 19970101, end: 19970101
  5. GLYCYRRHIZINATE [Suspect]
     Dates: start: 19941001
  6. SPIRONOLACTONE [Concomitant]
     Dates: start: 19970101
  7. POTASSIUM CHLORIDE [Concomitant]
     Dates: start: 19970101
  8. ALCOHOL [Suspect]
  9. VOLTAREN [Suspect]
     Indication: BACK PAIN
     Dosage: 25 MG/DAY
     Route: 048
     Dates: start: 19970820, end: 20020607

REACTIONS (22)
  - BETA 2 MICROGLOBULIN URINE INCREASED [None]
  - BETA-N-ACETYL-D-GLUCOSAMINIDASE INCREASED [None]
  - BIOPSY KIDNEY ABNORMAL [None]
  - BLOOD ALDOSTERONE INCREASED [None]
  - BLOOD CREATININE INCREASED [None]
  - BLOOD UREA INCREASED [None]
  - CREATININE RENAL CLEARANCE DECREASED [None]
  - FRACTURE [None]
  - GLOMERULAR FILTRATION RATE DECREASED [None]
  - HYPOALDOSTERONISM [None]
  - HYPOKALAEMIA [None]
  - HYPOTHALAMO-PITUITARY DISORDERS [None]
  - LUMBAR VERTEBRAL FRACTURE [None]
  - METABOLIC ALKALOSIS [None]
  - NEPHRITIS INTERSTITIAL [None]
  - OEDEMA [None]
  - PSEUDO-BARTTER SYNDROME [None]
  - RENAL FAILURE CHRONIC [None]
  - RENAL IMPAIRMENT [None]
  - RENIN DECREASED [None]
  - RENIN INCREASED [None]
  - URINE ELECTROPHORESIS ABNORMAL [None]
